FAERS Safety Report 9295420 (Version 1)
Quarter: 2013Q1

REPORT INFORMATION
  Report Type: Spontaneous
  Country: US (occurrence: None)
  Receive Date: 20121227
  Receipt Date: 20121227
  Transmission Date: 20140127
  Serious: No
  Sender: FDA-Public Use
  Company Number: PHEH2012US018454

PATIENT
  Age: 40 Year
  Sex: Male

DRUGS (2)
  1. AFINITOR [Suspect]
     Indication: TUBEROUS SCLEROSIS
     Route: 048
     Dates: start: 20110507, end: 20120507
  2. FLONASE (FLUTICASONE PROPIONATE) [Concomitant]

REACTIONS (3)
  - Neoplasm [None]
  - Oral pain [None]
  - Malignant neoplasm progression [None]
